FAERS Safety Report 14770117 (Version 4)
Quarter: 2018Q4

REPORT INFORMATION
  Report Type: Report from Study
  Country: US (occurrence: US)
  Receive Date: 20180417
  Receipt Date: 20181107
  Transmission Date: 20190204
  Serious: Yes (Hospitalization, Other)
  Sender: FDA-Public Use
  Company Number: US-JAZZ-2017-US-012968

PATIENT
  Age: 61 Year
  Sex: Female

DRUGS (4)
  1. XYREM [Suspect]
     Active Substance: SODIUM OXYBATE
     Indication: NARCOLEPSY
     Dosage: 2 G, BID
     Route: 048
     Dates: start: 201707, end: 201707
  2. XYREM [Suspect]
     Active Substance: SODIUM OXYBATE
     Dosage: 4 G, BID
     Route: 048
     Dates: start: 20180911, end: 20180912
  3. XYREM [Suspect]
     Active Substance: SODIUM OXYBATE
     Indication: CATAPLEXY
     Dosage: DOSE ADJUSTMENT
     Route: 048
     Dates: start: 201707, end: 201708
  4. XYREM [Suspect]
     Active Substance: SODIUM OXYBATE
     Dosage: 4.5 G, BID
     Route: 048
     Dates: start: 201708

REACTIONS (6)
  - Fall [Recovered/Resolved]
  - Viral infection [Unknown]
  - Concussion [Not Recovered/Not Resolved]
  - Infection [Unknown]
  - Oral infection [Recovered/Resolved]
  - Blood glucose decreased [Unknown]

NARRATIVE: CASE EVENT DATE: 20180909
